FAERS Safety Report 13594886 (Version 2)
Quarter: 2017Q2

REPORT INFORMATION
  Report Type: Report from Study
  Country: AU (occurrence: AU)
  Receive Date: 20170530
  Receipt Date: 20170630
  Transmission Date: 20170830
  Serious: Yes (Hospitalization, Other)
  Sender: FDA-Public Use
  Company Number: AU-BRISTOL-MYERS SQUIBB COMPANY-BMS-2017-000214

PATIENT
  Age: 81 Year
  Sex: Female
  Weight: 58 kg

DRUGS (5)
  1. PROGYNOVA                          /00045401/ [Concomitant]
     Active Substance: ESTRADIOL VALERATE
     Indication: PRODUCT USED FOR UNKNOWN INDICATION
     Route: 065
  2. ABATACEPT [Suspect]
     Active Substance: ABATACEPT
     Indication: RHEUMATOID ARTHRITIS
     Dosage: 750 MG, Q4WK
     Route: 042
     Dates: start: 20100304, end: 20170324
  3. METHOTREXATE. [Concomitant]
     Active Substance: METHOTREXATE
     Indication: PRODUCT USED FOR UNKNOWN INDICATION
     Route: 065
  4. OLMETEC [Concomitant]
     Active Substance: OLMESARTAN MEDOXOMIL
     Indication: PRODUCT USED FOR UNKNOWN INDICATION
     Route: 065
  5. FOLIC ACID. [Concomitant]
     Active Substance: FOLIC ACID
     Indication: PRODUCT USED FOR UNKNOWN INDICATION
     Route: 065

REACTIONS (6)
  - Mental impairment [Recovered/Resolved]
  - Inappropriate schedule of drug administration [Unknown]
  - Dementia [Not Recovered/Not Resolved]
  - Delirium [Unknown]
  - Urinary tract infection [Unknown]
  - Weight decreased [Unknown]

NARRATIVE: CASE EVENT DATE: 20170111
